FAERS Safety Report 6919732-6 (Version None)
Quarter: 2010Q3

REPORT INFORMATION
  Report Type: 
  Country: None (occurrence: None)
  Receive Date: 20100810
  Receipt Date: 20100810
  Transmission Date: 20110219
  Serious: Yes (Hospitalization)
  Sender: FDA-Public Use
  Company Number: None

PATIENT
  Age: 82 Year
  Sex: Female
  Weight: 65 kg

DRUGS (9)
  1. DIGOXIN [Suspect]
     Dosage: 0.125MG DAILY ORAL
     Route: 048
  2. ASPIRIN [Concomitant]
  3. POTASSIUM [Concomitant]
  4. VERAPAMIL HCL [Concomitant]
  5. PREDNISONE [Concomitant]
  6. LEVOTHYROXINE SODIUM [Concomitant]
  7. TRIAMTERENE AND HYDROCHLOROTHIAZIDE [Concomitant]
  8. FUROSEMIDE [Concomitant]
  9. WARFARIN SODIUM [Concomitant]

REACTIONS (6)
  - ASTHENIA [None]
  - CONFUSIONAL STATE [None]
  - NAUSEA [None]
  - RENAL FAILURE ACUTE [None]
  - THERAPEUTIC AGENT TOXICITY [None]
  - VOMITING [None]
